FAERS Safety Report 4427218-6 (Version None)
Quarter: 2004Q3

REPORT INFORMATION
  Report Type: 
  Country: None (occurrence: None)
  Receive Date: 20040817
  Receipt Date: 20040806
  Transmission Date: 20050211
  Serious: Yes (Other)
  Sender: FDA-Public Use
  Company Number: DE-JNJFOC-20040802007

PATIENT
  Sex: Female

DRUGS (1)
  1. REMICADE [Suspect]
     Indication: MYOCARDITIS RHEUMATIC

REACTIONS (1)
  - BLOOD CREATINE INCREASED [None]
